FAERS Safety Report 10874749 (Version 2)
Quarter: 2015Q3

REPORT INFORMATION
  Report Type: Report from Study
  Country: BR (occurrence: BR)
  Receive Date: 20150227
  Receipt Date: 20150923
  Transmission Date: 20151125
  Serious: Yes (Death, Hospitalization)
  Sender: FDA-Public Use
  Company Number: PHHY2015BR023837

PATIENT
  Sex: Male
  Weight: 54 kg

DRUGS (2)
  1. EXELON PATCH [Suspect]
     Active Substance: RIVASTIGMINE
     Indication: MEMORY IMPAIRMENT
  2. EXELON PATCH [Suspect]
     Active Substance: RIVASTIGMINE
     Indication: DEMENTIA ALZHEIMER^S TYPE
     Dosage: 1 DF, QD
     Route: 062
     Dates: start: 201409, end: 201411

REACTIONS (3)
  - Gastric cancer [Fatal]
  - Septic shock [Fatal]
  - Respiratory disorder [Fatal]
